FAERS Safety Report 19758350 (Version 2)
Quarter: 2021Q3

REPORT INFORMATION
  Report Type: Report from Study
  Country: CA (occurrence: CA)
  Receive Date: 20210828
  Receipt Date: 20210924
  Transmission Date: 20211014
  Serious: Yes (Other)
  Sender: FDA-Public Use
  Company Number: CA-TEVA-2021-CA-1945619

PATIENT
  Age: 44 Year
  Sex: Female

DRUGS (5)
  1. CALCIUM [Concomitant]
     Active Substance: CALCIUM
  2. MAGNESIUM [Concomitant]
     Active Substance: MAGNESIUM
  3. COPAXONE [Suspect]
     Active Substance: GLATIRAMER ACETATE
     Indication: MULTIPLE SCLEROSIS
     Dosage: 20 MILLIGRAM DAILY;
     Dates: start: 20110915
  4. VITAMIN D [Concomitant]
     Active Substance: VITAMIN D NOS
  5. CIPRALEX [Concomitant]
     Active Substance: ESCITALOPRAM OXALATE

REACTIONS (20)
  - Flushing [Recovered/Resolved]
  - Heart rate increased [Recovered/Resolved]
  - Fear [Unknown]
  - Discomfort [Unknown]
  - Emotional distress [Unknown]
  - Pain [Unknown]
  - Multiple sclerosis [Unknown]
  - Feeling hot [Recovered/Resolved]
  - Chills [Unknown]
  - Bundle branch block right [Unknown]
  - Myalgia [Unknown]
  - Suicidal ideation [Unknown]
  - Dyspnoea [Unknown]
  - Feeling cold [Unknown]
  - Fear of injection [Unknown]
  - Anxiety [Not Recovered/Not Resolved]
  - Shock [Unknown]
  - Bone pain [Unknown]
  - Depressed mood [Unknown]
  - Cardiac disorder [Unknown]

NARRATIVE: CASE EVENT DATE: 2021
